FAERS Safety Report 9945491 (Version 1)
Quarter: 2014Q1

REPORT INFORMATION
  Report Type: Report from Study
  Country: US (occurrence: US)
  Receive Date: 20140303
  Receipt Date: 20140303
  Transmission Date: 20141002
  Serious: No
  Sender: FDA-Public Use
  Company Number: US-ABBVIE-13P-163-1054712-00

PATIENT
  Age: 70 Year
  Sex: Female

DRUGS (9)
  1. HUMIRA [Suspect]
     Indication: CROHN^S DISEASE
     Dates: start: 20121012
  2. PENTASA [Concomitant]
     Indication: CROHN^S DISEASE
  3. PERIACTIN [Concomitant]
     Indication: ANTIALLERGIC THERAPY
  4. PERIACTIN [Concomitant]
     Indication: HOT FLUSH
  5. CELEXA [Concomitant]
     Indication: DEPRESSION
     Dosage: 20 MG DAILY
  6. CELEXA [Concomitant]
     Indication: ANXIETY
  7. ALPRAZOLAM [Concomitant]
     Indication: INSOMNIA
     Dosage: AT BEDTIME
  8. CALCIUM CARBONATE W/VITAMIN D NOS [Concomitant]
     Indication: PRODUCT USED FOR UNKNOWN INDICATION
  9. OPTIC VITAMIN [Concomitant]
     Indication: EYE DISORDER

REACTIONS (1)
  - Hunger [Not Recovered/Not Resolved]
